FAERS Safety Report 8866777 (Version 1)
Quarter: 2012Q4

REPORT INFORMATION
  Report Type: 
  Country: US (occurrence: US)
  Receive Date: 20121025
  Receipt Date: 20121025
  Transmission Date: 20130627
  Serious: No
  Sender: FDA-Public Use
  Company Number: US-AMGEN-USASP2012013308

PATIENT
  Age: 77 Year
  Sex: Male
  Weight: 74.83 kg

DRUGS (5)
  1. ENBREL [Suspect]
     Indication: PRODUCT USED FOR UNKNOWN INDICATION
     Dosage: 50 mg, UNK
     Route: 058
  2. OMEPRAZOLE [Concomitant]
     Dosage: 20 mg, UNK
  3. MULTIPLE VITAMINS [Concomitant]
     Dosage: UNK
  4. FLOMAX                             /00889901/ [Concomitant]
     Dosage: 0.4 mg, UNK
  5. ASA [Concomitant]
     Dosage: 81 mg, UNK

REACTIONS (2)
  - Haemorrhage [Unknown]
  - Nasopharyngitis [Unknown]
